FAERS Safety Report 6867834-5 (Version None)
Quarter: 2010Q3

REPORT INFORMATION
  Report Type: 
  Country: None (occurrence: None)
  Receive Date: 20100722
  Receipt Date: 20100722
  Transmission Date: 20110219
  Serious: Yes (Other)
  Sender: FDA-Public Use
  Company Number: None

PATIENT
  Age: 80 Year
  Sex: Male
  Weight: 61.6892 kg

DRUGS (1)
  1. FUROSEMIDE [Suspect]
     Indication: OEDEMA
     Dosage: 1 TABLET DAILY
     Dates: start: 20100624, end: 20100722

REACTIONS (2)
  - DRUG INEFFECTIVE [None]
  - PRODUCT QUALITY ISSUE [None]
